FAERS Safety Report 5909968-5 (Version None)
Quarter: 2008Q4

REPORT INFORMATION
  Report Type: 
  Country: None (occurrence: None)
  Receive Date: 20081007
  Receipt Date: 20080930
  Transmission Date: 20090506
  Serious: Yes (Life-Threatening, Hospitalization, Other)
  Sender: FDA-Public Use
  Company Number: JP-BAYER-200811431BYL

PATIENT
  Age: 50 Year
  Sex: Male
  Weight: 74 kg

DRUGS (3)
  1. NEXAVAR [Suspect]
     Indication: RENAL CELL CARCINOMA STAGE IV
     Dosage: TOTAL DAILY DOSE: 800 MG  UNIT DOSE: 200 MG
     Route: 048
     Dates: start: 20080615, end: 20080626
  2. NEXAVAR [Suspect]
     Dosage: TOTAL DAILY DOSE: 400 MG  UNIT DOSE: 200 MG
     Route: 048
     Dates: start: 20080627, end: 20080709
  3. LENDORMIN D [Concomitant]
     Route: 048

REACTIONS (5)
  - DIARRHOEA [None]
  - ENCEPHALITIC INFECTION [None]
  - EPISTAXIS [None]
  - HYPERTENSION [None]
  - MYOCARDIAL INFARCTION [None]
